FAERS Safety Report 17686450 (Version 1)
Quarter: 2020Q2

REPORT INFORMATION
  Report Type: Spontaneous
  Country: US (occurrence: US)
  Receive Date: 20200420
  Receipt Date: 20200420
  Transmission Date: 20200714
  Serious: Yes (Other)
  Sender: FDA-Public Use
  Company Number: US-NAPPMUNDI-USA-2020-0151793

PATIENT
  Sex: Male

DRUGS (3)
  1. LORTAB [Suspect]
     Active Substance: ACETAMINOPHEN\HYDROCODONE BITARTRATE
     Indication: PAIN
     Dosage: 10 MG, UNK
     Route: 048
  2. MORPHINE SULFATE (SIMILAR TO NDA 19-516) [Suspect]
     Active Substance: MORPHINE SULFATE
     Indication: PAIN
     Dosage: 5 MG, BID
     Route: 048
     Dates: start: 2014
  3. OXYCONTIN [Suspect]
     Active Substance: OXYCODONE HYDROCHLORIDE
     Indication: PAIN
     Dosage: 20 MG, 3-4 TIMES A DAY
     Route: 048
     Dates: start: 2014, end: 201907

REACTIONS (8)
  - Sexual dysfunction [Unknown]
  - Spinal fracture [Unknown]
  - Catheter placement [Unknown]
  - Mental impairment [Unknown]
  - Product prescribing issue [Unknown]
  - Road traffic accident [Unknown]
  - Gait inability [Unknown]
  - Off label use [Unknown]

NARRATIVE: CASE EVENT DATE: 2014
